FAERS Safety Report 24081400 (Version 1)
Quarter: 2024Q3

REPORT INFORMATION
  Report Type: Spontaneous
  Country: US (occurrence: US)
  Receive Date: 20240711
  Receipt Date: 20240711
  Transmission Date: 20241017
  Serious: Yes (Other)
  Sender: BEIGENE
  Company Number: US-BEIGENE-BGN-2024-010563

PATIENT

DRUGS (2)
  1. BRUKINSA [Suspect]
     Active Substance: ZANUBRUTINIB
     Indication: Mantle cell lymphoma
     Dosage: 320 MILLIGRAM
     Route: 048
     Dates: start: 202401
  2. BRUKINSA [Suspect]
     Active Substance: ZANUBRUTINIB
     Dosage: 80 MILLIGRAM, BID
     Route: 048

REACTIONS (5)
  - Atrial fibrillation [Unknown]
  - Chest pain [Unknown]
  - Bone pain [Unknown]
  - Fatigue [Unknown]
  - Positron emission tomogram abnormal [Unknown]

NARRATIVE: CASE EVENT DATE: 20240301
